FAERS Safety Report 21718929 (Version 1)
Quarter: 2022Q4

REPORT INFORMATION
  Report Type: Report from Study
  Country: KR (occurrence: KR)
  Receive Date: 20221213
  Receipt Date: 20221213
  Transmission Date: 20230112
  Serious: Yes (Death, Life-Threatening, Hospitalization, Other)
  Sender: FDA-Public Use
  Company Number: KR-BRISTOL-MYERS SQUIBB COMPANY-2022-148662

PATIENT
  Age: 60 Year
  Sex: Male

DRUGS (1)
  1. ORENCIA [Suspect]
     Active Substance: ABATACEPT
     Indication: Rheumatoid arthritis

REACTIONS (9)
  - Wound [Recovered/Resolved]
  - Pyoderma [Unknown]
  - Infection [Fatal]
  - Interstitial lung disease [Unknown]
  - Bronchiectasis [Unknown]
  - COVID-19 [Unknown]
  - Lung infiltration [Unknown]
  - Respiratory failure [Unknown]
  - Stupor [Unknown]

NARRATIVE: CASE EVENT DATE: 20220808
